FAERS Safety Report 4753157-7 (Version None)
Quarter: 2005Q3

REPORT INFORMATION
  Report Type: 
  Country: None (occurrence: None)
  Receive Date: 20050823
  Receipt Date: 20050810
  Transmission Date: 20060218
  Serious: Yes (Hospitalization)
  Sender: FDA-Public Use
  Company Number: S05-USA-02983-01

PATIENT
  Age: 66 Year
  Sex: Male
  Weight: 71.4415 kg

DRUGS (7)
  1. NAMENDA [Suspect]
     Indication: DEMENTIA ALZHEIMER'S TYPE
     Dosage: 5 MG QD PO
     Route: 048
     Dates: start: 20050601, end: 20050606
  2. AMANTADINE [Concomitant]
  3. RISPERDAL [Concomitant]
  4. ARICEPT [Concomitant]
  5. DEPAKOTE [Concomitant]
  6. ATENOLOL [Concomitant]
  7. CELEBREX [Concomitant]

REACTIONS (3)
  - CONDITION AGGRAVATED [None]
  - DRUG INTERACTION [None]
  - PARKINSONISM [None]
